FAERS Safety Report 12682107 (Version 2)
Quarter: 2016Q4

REPORT INFORMATION
  Report Type: Report from Study
  Country: None (occurrence: MX)
  Receive Date: 20160824
  Receipt Date: 20161014
  Transmission Date: 20170207
  Serious: Yes (Hospitalization, Disabling)
  Sender: FDA-Public Use
  Company Number: MX-ABBVIE-16K-107-1704289-00

PATIENT
  Age: 57 Year
  Sex: Male
  Weight: 88 kg

DRUGS (2)
  1. HUMIRA [Suspect]
     Active Substance: ADALIMUMAB
     Indication: PSORIASIS
     Route: 058
     Dates: start: 20160813
  2. HUMIRA [Suspect]
     Active Substance: ADALIMUMAB
     Route: 058

REACTIONS (3)
  - Meniscus injury [Not Recovered/Not Resolved]
  - Inflammation [Unknown]
  - Mobility decreased [Recovered/Resolved with Sequelae]

NARRATIVE: CASE EVENT DATE: 201608
